FAERS Safety Report 8410887-3 (Version None)
Quarter: 2012Q2

REPORT INFORMATION
  Report Type: 
  Country: None (occurrence: None)
  Receive Date: 20120605
  Receipt Date: 20120531
  Transmission Date: 20120825
  Serious: Yes (Other)
  Sender: FDA-Public Use
  Company Number: PHHY2011US16888

PATIENT
  Sex: Male
  Weight: 105 kg

DRUGS (13)
  1. ENALAPRIL MALEATE [Concomitant]
     Indication: BLOOD PRESSURE
     Dosage: UNK UKN, UNK
     Route: 065
  2. AFINITOR [Suspect]
     Indication: BRAIN NEOPLASM BENIGN
     Dosage: 5 MG, DAILY
     Route: 048
     Dates: start: 20110107, end: 20120408
  3. VIGABATRIN [Concomitant]
  4. DILANTIN [Concomitant]
  5. SABRIL [Concomitant]
     Dosage: UNK UKN, UNK
     Route: 065
  6. FOCALIN XR [Concomitant]
     Dosage: UNK UKN, UNK
     Route: 065
  7. VITAMINS NOS [Concomitant]
  8. SIROLIMUS [Concomitant]
  9. FELBAMATE [Concomitant]
  10. CARAFATE [Concomitant]
     Dosage: UNK UKN, UNK
     Route: 065
  11. VIMPAT [Concomitant]
     Indication: CONVULSION
     Dosage: UNK UKN, UNK
  12. CLONIDINE [Concomitant]
     Indication: BLOOD PRESSURE
     Dosage: UNK UKN, UNK
     Route: 065
  13. BACTRIM [Concomitant]
     Indication: PROPHYLAXIS
     Dosage: UNK UKN, UNK
     Route: 065

REACTIONS (17)
  - FOAMING AT MOUTH [None]
  - BLOOD PRESSURE DECREASED [None]
  - GAIT DISTURBANCE [None]
  - COUGH [None]
  - STOMATITIS [None]
  - IRRITABILITY [None]
  - ATONIC SEIZURES [None]
  - FALL [None]
  - HERPANGINA [None]
  - CYANOSIS [None]
  - NASAL CONGESTION [None]
  - DYSPNOEA [None]
  - VOMITING [None]
  - DISORIENTATION [None]
  - PYREXIA [None]
  - ANGIOFIBROMA [None]
  - CONVULSION [None]
